FAERS Safety Report 25862030 (Version 2)
Quarter: 2025Q4

REPORT INFORMATION
  Report Type: Spontaneous
  Country: US (occurrence: US)
  Receive Date: 20250930
  Receipt Date: 20251014
  Transmission Date: 20260118
  Serious: No
  Sender: SANOFI AVENTIS
  Company Number: US-SA-2025SA289309

PATIENT
  Age: 78 Year
  Sex: Male

DRUGS (1)
  1. DUPIXENT [Suspect]
     Active Substance: DUPILUMAB
     Indication: Pemphigoid
     Dosage: 300 MG, QOW
     Route: 058

REACTIONS (7)
  - Blood pressure increased [Unknown]
  - Chest pain [Unknown]
  - Cough [Unknown]
  - Insomnia [Unknown]
  - Pruritus [Unknown]
  - Rash macular [Unknown]
  - Arthralgia [Unknown]
